FAERS Safety Report 19789652 (Version 3)
Quarter: 2021Q3

REPORT INFORMATION
  Report Type: Spontaneous
  Country: DE (occurrence: DE)
  Receive Date: 20210905
  Receipt Date: 20210920
  Transmission Date: 20211014
  Serious: No
  Sender: FDA-Public Use
  Company Number: NVSC2021DE176206

PATIENT
  Sex: Female

DRUGS (2)
  1. ERELZI [Suspect]
     Active Substance: ETANERCEPT-SZZS
     Indication: SPONDYLITIS
     Dosage: 50 MG, QW
     Route: 065
     Dates: start: 202106, end: 2021
  2. ERELZI [Suspect]
     Active Substance: ETANERCEPT-SZZS
     Dosage: 50 MG, QW
     Route: 065
     Dates: start: 2021, end: 2021

REACTIONS (7)
  - Blister [Recovering/Resolving]
  - Drug intolerance [Recovered/Resolved]
  - Tooth abscess [Recovered/Resolved]
  - Pustule [Recovering/Resolving]
  - Product dose omission issue [Unknown]
  - Skin exfoliation [Recovering/Resolving]
  - Skin discolouration [Recovering/Resolving]

NARRATIVE: CASE EVENT DATE: 2021
